FAERS Safety Report 7105146-5 (Version None)
Quarter: 2010Q4

REPORT INFORMATION
  Report Type: 
  Country: None (occurrence: None)
  Receive Date: 20101108
  Receipt Date: 20101025
  Transmission Date: 20110411
  Serious: Yes (Death, Life-Threatening)
  Sender: FDA-Public Use
  Company Number: APP201000900

PATIENT
  Age: 52 Year
  Sex: Female

DRUGS (10)
  1. HEPARIN SODIUM INJECTION [Suspect]
     Indication: DEEP VEIN THROMBOSIS
     Dosage: 12,000 UNITS, BOLUS ; 10,000 UNITS BOLUS
     Route: 040
     Dates: start: 20080320
  2. HEPARIN SODIUM INJECTION [Suspect]
     Indication: PULMONARY EMBOLISM
     Dosage: 12,000 UNITS, BOLUS ; 10,000 UNITS BOLUS
     Route: 040
     Dates: start: 20080320
  3. HEPARIN SODIUM INJECTION [Suspect]
     Indication: DEEP VEIN THROMBOSIS
     Dosage: 12,000 UNITS, BOLUS ; 10,000 UNITS BOLUS
     Route: 040
     Dates: start: 20080405
  4. HEPARIN SODIUM INJECTION [Suspect]
     Indication: PULMONARY EMBOLISM
     Dosage: 12,000 UNITS, BOLUS ; 10,000 UNITS BOLUS
     Route: 040
     Dates: start: 20080405
  5. HEPARIN SODIUM INJECTION [Suspect]
     Indication: DEEP VEIN THROMBOSIS
     Dosage: 25,000 UNITS IN 0.45% NACL, INTRAVENOUS ; 8 MLS/HR (25,000 UNITS IN 0.45% NACL)
     Route: 042
     Dates: start: 20080320
  6. HEPARIN SODIUM INJECTION [Suspect]
     Indication: PULMONARY EMBOLISM
     Dosage: 25,000 UNITS IN 0.45% NACL, INTRAVENOUS ; 8 MLS/HR (25,000 UNITS IN 0.45% NACL)
     Route: 042
     Dates: start: 20080320
  7. HEPARIN SODIUM INJECTION [Suspect]
     Indication: DEEP VEIN THROMBOSIS
     Dosage: 25,000 UNITS IN 0.45% NACL, INTRAVENOUS ; 8 MLS/HR (25,000 UNITS IN 0.45% NACL)
     Route: 042
     Dates: start: 20080405
  8. HEPARIN SODIUM INJECTION [Suspect]
     Indication: PULMONARY EMBOLISM
     Dosage: 25,000 UNITS IN 0.45% NACL, INTRAVENOUS ; 8 MLS/HR (25,000 UNITS IN 0.45% NACL)
     Route: 042
     Dates: start: 20080405
  9. PROPOFOL [Concomitant]
  10. LASIX [Concomitant]

REACTIONS (12)
  - DEEP VEIN THROMBOSIS [None]
  - ENTEROCOLITIS HAEMORRHAGIC [None]
  - HAEMOGLOBIN DECREASED [None]
  - HYPOALBUMINAEMIA [None]
  - LOSS OF CONSCIOUSNESS [None]
  - MEDICAL DEVICE COMPLICATION [None]
  - PLEURAL EFFUSION [None]
  - PULMONARY EMBOLISM [None]
  - SEPTIC SHOCK [None]
  - THROMBOCYTOPENIA [None]
  - VENOUS THROMBOSIS LIMB [None]
  - WEANING FAILURE [None]
